FAERS Safety Report 17632049 (Version 1)
Quarter: 2020Q2

REPORT INFORMATION
  Report Type: Spontaneous
  Country: US (occurrence: US)
  Receive Date: 20200406
  Receipt Date: 20200406
  Transmission Date: 20200713
  Serious: Yes (Hospitalization)
  Sender: FDA-Public Use
  Company Number: None

PATIENT
  Age: 87 Year
  Sex: Female
  Weight: 60.75 kg

DRUGS (4)
  1. ASPIRIN. [Concomitant]
     Active Substance: ASPIRIN
  2. CHLORTHALIDONE. [Concomitant]
     Active Substance: CHLORTHALIDONE
  3. LOVASTATIN. [Concomitant]
     Active Substance: LOVASTATIN
  4. RANITIDINE. [Suspect]
     Active Substance: RANITIDINE
     Indication: CEREBROVASCULAR ACCIDENT PROPHYLAXIS
     Dosage: ?          QUANTITY:1 TABLET(S);?
     Route: 048
     Dates: start: 20191004, end: 20200406

REACTIONS (3)
  - Movement disorder [None]
  - Grip strength decreased [None]
  - Asthenia [None]

NARRATIVE: CASE EVENT DATE: 20200303
